FAERS Safety Report 5829453-9 (Version None)
Quarter: 2008Q3

REPORT INFORMATION
  Report Type: 
  Country: None (occurrence: None)
  Receive Date: 20080729
  Receipt Date: 20080714
  Transmission Date: 20090109
  Serious: No
  Sender: FDA-Public Use
  Company Number: 030535

PATIENT
  Sex: Male

DRUGS (1)
  1. CLARAVIS [Suspect]
     Indication: ACNE
     Dosage: 60 MG, QD, ORAL
     Route: 048
     Dates: start: 20071101

REACTIONS (1)
  - PATERNAL DRUGS AFFECTING FOETUS [None]
